FAERS Safety Report 19179870 (Version 1)
Quarter: 2021Q2

REPORT INFORMATION
  Report Type: Spontaneous
  Country: GB (occurrence: GB)
  Receive Date: 20210426
  Receipt Date: 20210426
  Transmission Date: 20210717
  Serious: Yes (Other)
  Sender: FDA-Public Use
  Company Number: GB-TEVA-2021-GB-1903947

PATIENT
  Age: 52 Year
  Sex: Female
  Weight: 94 kg

DRUGS (4)
  1. COCODAMOL [Concomitant]
     Active Substance: ACETAMINOPHEN\CODEINE PHOSPHATE
  2. BISOPROLOL [Concomitant]
     Active Substance: BISOPROLOL
  3. PARACETAMOL [Concomitant]
     Active Substance: ACETAMINOPHEN
  4. AMLODIPINE [Suspect]
     Active Substance: AMLODIPINE BESYLATE
     Indication: ILL-DEFINED DISORDER
     Dosage: 5 MG
     Route: 048

REACTIONS (3)
  - Bladder irritation [Recovered/Resolved]
  - Alopecia [Recovering/Resolving]
  - Abdominal pain [Recovered/Resolved]

NARRATIVE: CASE EVENT DATE: 20200211
